FAERS Safety Report 4948063-9 (Version None)
Quarter: 2006Q1

REPORT INFORMATION
  Report Type: 
  Country: None (occurrence: None)
  Receive Date: 20060320
  Receipt Date: 20060308
  Transmission Date: 20060701
  Serious: Yes (Other)
  Sender: FDA-Public Use
  Company Number: JP-BRISTOL-MYERS SQUIBB COMPANY-13309687

PATIENT
  Age: 8 Decade
  Sex: Female

DRUGS (1)
  1. KENACORT-A OPHTHALMIC OINTMENT [Suspect]
     Indication: OSTEOARTHRITIS
     Route: 014

REACTIONS (1)
  - BLOOD PRESSURE DECREASED [None]
